FAERS Safety Report 17203076 (Version 1)
Quarter: 2019Q4

REPORT INFORMATION
  Report Type: Spontaneous
  Country: FR (occurrence: FR)
  Receive Date: 20191226
  Receipt Date: 20191226
  Transmission Date: 20200122
  Serious: Yes (Other)
  Sender: FDA-Public Use
  Company Number: FR-MYLANLABS-2019M1126367

PATIENT
  Age: 76 Year
  Sex: Female

DRUGS (1)
  1. CAPTOPRIL E IDROCLOROTIAZIDE MYLAN GENERICS 50 MG + 25 MG COMPRESSE. [Suspect]
     Active Substance: CAPTOPRIL\HYDROCHLOROTHIAZIDE
     Indication: HYPERTENSION
     Dosage: 1 DOSAGE FORM, QD
     Route: 048
     Dates: start: 2019, end: 2019

REACTIONS (2)
  - Swollen tongue [Recovered/Resolved]
  - Formication [Recovered/Resolved]

NARRATIVE: CASE EVENT DATE: 2019
